FAERS Safety Report 4515470-8 (Version None)
Quarter: 2004Q4

REPORT INFORMATION
  Report Type: 
  Country: None (occurrence: None)
  Receive Date: 20041126
  Receipt Date: 20041112
  Transmission Date: 20050328
  Serious: Yes (Hospitalization, Other)
  Sender: FDA-Public Use
  Company Number: 2004092981

PATIENT
  Age: 55 Year
  Sex: Male

DRUGS (10)
  1. LIPITOR [Suspect]
     Indication: HYPERLIPIDAEMIA
     Dosage: ORAL
     Route: 048
  2. LITHIUM CARBONATE [Suspect]
     Indication: MANIA
     Dosage: 600 MG ORAL
     Route: 048
     Dates: start: 20010101, end: 20031121
  3. CHLORPROMAZINE [Suspect]
     Indication: MANIA
     Dosage: 125 MG ORAL
     Route: 048
     Dates: start: 20031118, end: 20031121
  4. ANTIPSYCHOTICS (ANTIPSYCHOTICS) [Suspect]
  5. ALL OTHER THERAPEUTIC PRODUCTS (ALL OTHER THERAPEUTIC PRODUCTS) [Suspect]
  6. VALPROATE SODIUM [Concomitant]
  7. LEVOMEPROMAZINE MALEATE(LEVOMEPROMAZINE MALEATE) [Concomitant]
  8. OLANZAPINE [Concomitant]
  9. CLONAZEPAM [Concomitant]
  10. RISPERDAL [Concomitant]

REACTIONS (14)
  - BACK PAIN [None]
  - DELUSION OF GRANDEUR [None]
  - DEPRESSION [None]
  - DRUG INTERACTION [None]
  - FLIGHT OF IDEAS [None]
  - HAEMODIALYSIS [None]
  - HYPERKINESIA [None]
  - LOGORRHOEA [None]
  - MALE SEXUAL DYSFUNCTION [None]
  - MANIA [None]
  - MOVEMENT DISORDER [None]
  - PAIN [None]
  - RHABDOMYOLYSIS [None]
  - SLEEP DISORDER [None]
